FAERS Safety Report 10013544 (Version 3)
Quarter: 2014Q2

REPORT INFORMATION
  Report Type: Spontaneous
  Country: JP (occurrence: JP)
  Receive Date: 20140315
  Receipt Date: 20140409
  Transmission Date: 20141212
  Serious: Yes (Other)
  Sender: FDA-Public Use
  Company Number: JP-ROCHE-1364991

PATIENT
  Age: 79 Year
  Sex: Male

DRUGS (3)
  1. ACTILYSE [Suspect]
     Indication: ISCHAEMIC STROKE
     Route: 042
  2. GLYCEROL [Concomitant]
  3. EDARAVONE [Concomitant]

REACTIONS (4)
  - Haemothorax [Unknown]
  - Haemorrhagic transformation stroke [Unknown]
  - Atelectasis [Unknown]
  - Pneumothorax [Unknown]
